FAERS Safety Report 13074298 (Version 2)
Quarter: 2020Q1

REPORT INFORMATION
  Report Type: Spontaneous
  Country: US (occurrence: US)
  Receive Date: 20161230
  Receipt Date: 20200205
  Transmission Date: 20200409
  Serious: No
  Sender: FDA-Public Use
  Company Number: US-GLENMARK PHARMACEUTICALS INC, USA.-2016GMK023334

PATIENT

DRUGS (1)
  1. CICLOPIROX OLAMINE CREAM [Suspect]
     Active Substance: CICLOPIROX OLAMINE
     Indication: FUNGAL SKIN INFECTION
     Dosage: UNK, BID, FOR 4 WEEKS
     Route: 061
     Dates: start: 20160529, end: 20160615

REACTIONS (7)
  - Phlebitis [Recovering/Resolving]
  - Erythema [Recovering/Resolving]
  - Pain in extremity [Recovering/Resolving]
  - Application site inflammation [Recovering/Resolving]
  - Peripheral swelling [Recovering/Resolving]
  - Application site erythema [Recovering/Resolving]
  - Pain [Recovering/Resolving]

NARRATIVE: CASE EVENT DATE: 2016
